FAERS Safety Report 5656973-2 (Version None)
Quarter: 2008Q1

REPORT INFORMATION
  Report Type: 
  Country: None (occurrence: None)
  Receive Date: 20080310
  Receipt Date: 20080306
  Transmission Date: 20080703
  Serious: Yes (Other)
  Sender: FDA-Public Use
  Company Number: B0507975A

PATIENT
  Age: 37 Year
  Sex: Female

DRUGS (3)
  1. RELENZA [Suspect]
     Indication: INFLUENZA
     Dosage: 10MG TWICE PER DAY
     Route: 055
     Dates: start: 20080204, end: 20080207
  2. CALONAL [Concomitant]
     Indication: INFLUENZA
     Dosage: 200MG THREE TIMES PER DAY
     Route: 048
     Dates: start: 20080204, end: 20080207
  3. SUCRALFATE [Concomitant]
     Indication: INFLUENZA
     Dosage: 1G THREE TIMES PER DAY
     Route: 048
     Dates: start: 20080204, end: 20080207

REACTIONS (3)
  - HALLUCINATION [None]
  - HYPOAESTHESIA FACIAL [None]
  - PHOTOPSIA [None]
